FAERS Safety Report 25766446 (Version 1)
Quarter: 2025Q3

REPORT INFORMATION
  Report Type: Spontaneous
  Country: US (occurrence: US)
  Receive Date: 20250905
  Receipt Date: 20250905
  Transmission Date: 20251021
  Serious: No
  Sender: MYLAN
  Company Number: US-MYLANLABS-2025M1073343

PATIENT
  Sex: Male

DRUGS (1)
  1. BREYNA [Suspect]
     Active Substance: BUDESONIDE\FORMOTEROL FUMARATE
     Indication: Cough
     Dosage: 160 PER 4.5 MICROGRAM, BID (TWICE A DAY)

REACTIONS (3)
  - Off label use [Unknown]
  - Product substitution issue [Unknown]
  - Device delivery system issue [Unknown]
